FAERS Safety Report 10707262 (Version 1)
Quarter: 2015Q1

REPORT INFORMATION
  Report Type: Spontaneous
  Country: US (occurrence: None)
  Receive Date: 20150112
  Receipt Date: 20150112
  Transmission Date: 20150721
  Serious: No
  Sender: FDA-Public Use
  Company Number: None

PATIENT
  Age: 02 Year
  Sex: Male

DRUGS (1)
  1. MIRALAX [Suspect]
     Active Substance: POLYETHYLENE GLYCOL 3350
     Indication: CONSTIPATION
     Dosage: 17 G DAILY DISSOLVED IN?ONCE DAILY?TAKEN BY MOUTH
     Route: 048

REACTIONS (8)
  - Sleep terror [None]
  - Oppositional defiant disorder [None]
  - Anxiety [None]
  - Incorrect dose administered [None]
  - Obsessive-compulsive disorder [None]
  - Nightmare [None]
  - Tic [None]
  - Emotional disorder [None]
